FAERS Safety Report 5655645-8 (Version None)
Quarter: 2008Q1

REPORT INFORMATION
  Report Type: 
  Country: None (occurrence: None)
  Receive Date: 20080212
  Receipt Date: 20070919
  Transmission Date: 20080703
  Serious: Yes (Hospitalization, Other)
  Sender: FDA-Public Use
  Company Number: MC200700614

PATIENT
  Sex: Male

DRUGS (6)
  1. ANGIOMAX [Suspect]
     Indication: HEPARIN-INDUCED THROMBOCYTOPENIA
     Dosage: BOLUS, IV BOLUS; INTRAVENOUS; 1.75MG/KG, HR, ITRAVENOUS
     Route: 040
     Dates: start: 20070101, end: 20070101
  2. ANGIOMAX [Suspect]
     Indication: PERCUTANEOUS CORONARY INTERVENTION
     Dosage: BOLUS, IV BOLUS; INTRAVENOUS; 1.75MG/KG, HR, ITRAVENOUS
     Route: 040
     Dates: start: 20070101, end: 20070101
  3. ANGIOMAX [Suspect]
     Indication: HEPARIN-INDUCED THROMBOCYTOPENIA
     Dosage: BOLUS, IV BOLUS; INTRAVENOUS; 1.75MG/KG, HR, ITRAVENOUS
     Route: 040
     Dates: start: 20070101, end: 20070101
  4. ANGIOMAX [Suspect]
     Indication: PERCUTANEOUS CORONARY INTERVENTION
     Dosage: BOLUS, IV BOLUS; INTRAVENOUS; 1.75MG/KG, HR, ITRAVENOUS
     Route: 040
     Dates: start: 20070101, end: 20070101
  5. ANGIOMAX [Suspect]
     Indication: HEPARIN-INDUCED THROMBOCYTOPENIA
     Dosage: BOLUS, IV BOLUS; INTRAVENOUS; 1.75MG/KG, HR, ITRAVENOUS
     Route: 040
     Dates: start: 20070918, end: 20070919
  6. ANGIOMAX [Suspect]
     Indication: PERCUTANEOUS CORONARY INTERVENTION
     Dosage: BOLUS, IV BOLUS; INTRAVENOUS; 1.75MG/KG, HR, ITRAVENOUS
     Route: 040
     Dates: start: 20070918, end: 20070919

REACTIONS (2)
  - GINGIVAL BLEEDING [None]
  - THROMBOSIS [None]
